FAERS Safety Report 15095476 (Version 1)
Quarter: 2018Q3

REPORT INFORMATION
  Report Type: Spontaneous
  Country: IT (occurrence: IT)
  Receive Date: 20180702
  Receipt Date: 20180702
  Transmission Date: 20181010
  Serious: Yes (Hospitalization)
  Sender: FDA-Public Use
  Company Number: IT-TEVA-2018-IT-917510

PATIENT
  Age: 56 Year
  Sex: Female

DRUGS (2)
  1. PAROXETINE. [Suspect]
     Active Substance: PAROXETINE
     Route: 048
     Dates: start: 20180209, end: 20180209
  2. LEXOTAN 2.5 MG / ML ORAL DROPS SOLUTION [Suspect]
     Active Substance: BROMAZEPAM
     Route: 048
     Dates: start: 20180209, end: 20180209

REACTIONS (3)
  - Drug abuse [Recovering/Resolving]
  - Confusional state [Recovering/Resolving]
  - Suicide attempt [Recovering/Resolving]

NARRATIVE: CASE EVENT DATE: 20180209
